FAERS Safety Report 9094309 (Version 2)
Quarter: 2014Q1

REPORT INFORMATION
  Report Type: Spontaneous
  Country: US (occurrence: US)
  Receive Date: 20130201
  Receipt Date: 20140210
  Transmission Date: 20141002
  Serious: Yes (Hospitalization, Other)
  Sender: FDA-Public Use
  Company Number: US-BAYER-2013-013351

PATIENT
  Age: 26 Year
  Sex: Female

DRUGS (11)
  1. YAZ [Suspect]
     Dosage: UNK
     Dates: start: 20081223
  2. YASMIN [Suspect]
     Dosage: UNK
     Dates: start: 20081223
  3. OCELLA [Suspect]
     Dosage: UNK
     Dates: start: 20081223
  4. SONATA [Concomitant]
     Dosage: 10 MG, ONE CAPSULE HS
  5. INVEGA [Concomitant]
     Dosage: 3 MG, ONE TABLET OM
  6. LAMOTRIGINE [Concomitant]
     Dosage: 100 MG, DAILY
  7. ACYCLOVIR [ACICLOVIR] [Concomitant]
     Dosage: 400 MG, 2 TABLES EVERY 12 HOURS
  8. OMEPRAZOLE [Concomitant]
     Dosage: 20 MG, DAILY
  9. POTASSIUM CHLORIDE [Concomitant]
     Dosage: 20 MEQ, 2 TABLETS DAILY
     Route: 048
  10. TOPAMAX [Concomitant]
     Indication: MIGRAINE
     Dosage: 50 MG, ONE TABLET EVERY MORNING AND TAKE 2 TABLES AT BEDTIME
  11. CARAFATE [Concomitant]

REACTIONS (9)
  - Gallbladder injury [None]
  - Biliary dyskinesia [None]
  - Cholecystitis chronic [None]
  - Injury [None]
  - Pain [None]
  - Emotional distress [None]
  - General physical health deterioration [None]
  - Anxiety [None]
  - Pain [None]
